FAERS Safety Report 19307537 (Version 1)
Quarter: 2021Q2

REPORT INFORMATION
  Report Type: Spontaneous
  Country: US (occurrence: US)
  Receive Date: 20210526
  Receipt Date: 20210526
  Transmission Date: 20210717
  Serious: Yes (Life-Threatening, Hospitalization)
  Sender: FDA-Public Use
  Company Number: US-MYLANLABS-2021M1030570

PATIENT
  Age: 19 Year
  Sex: Female
  Weight: 100 kg

DRUGS (17)
  1. FENTANYL. [Suspect]
     Active Substance: FENTANYL
     Dosage: MULTIPLE BOLUSES OF FENTANYL (A TOTAL OF 2050MICROG IN 24 DIVIDED DOSES)
  2. SALINE                             /00075401/ [Suspect]
     Active Substance: SODIUM CHLORIDE
     Dosage: 120 MILLIEQUIVALENT THREE 120 MEQ BOLUSES OF 23.4% HYPERTONIC SODIUM CHLORIDE
     Route: 065
  3. FENTANYL. [Suspect]
     Active Substance: FENTANYL
     Dosage: TITRATED TO A MAXIMUM DOSE OF 1.5 MICROG/KG/H
  4. SALINE                             /00075401/ [Suspect]
     Active Substance: SODIUM CHLORIDE
     Indication: INTRACRANIAL PRESSURE INCREASED
     Dosage: 120 MILLIEQUIVALENT SINGLE 120 MEQ BOLUS OF 23.4% HYPERTONIC SODIUM CHLORIDE
     Route: 065
  5. ROCURONIUM [Suspect]
     Active Substance: ROCURONIUM BROMIDE
     Dosage: 100 MILLIGRAM THREE 100MG BOLUSES OF ROCURONIUM BROMIDE
     Route: 065
  6. KETAMINE [Concomitant]
     Active Substance: KETAMINE
     Indication: INTRACRANIAL PRESSURE INCREASED
     Dosage: 100 MILLIGRAM SINGLE 100 MG BOLUS OF KETAMINE
     Route: 065
  7. MIDAZOLAM. [Suspect]
     Active Substance: MIDAZOLAM
     Dosage: MULTIPLE BOLUSES OF MIDAZOLAM (A TOTAL OF 47MG IN 13 DIVIDED DOSES) BOLUS
  8. PENTOBARBITAL. [Concomitant]
     Active Substance: PENTOBARBITAL
     Indication: INTRACRANIAL PRESSURE INCREASED
     Dosage: 10 MILLIGRAM/KILOGRAM BOLUS
     Route: 065
  9. PENTOBARBITAL. [Concomitant]
     Active Substance: PENTOBARBITAL
     Dosage: THE PENTOBARBITAL INFUSION WAS TITRATED TO AN ICP GOAL OF LESS THAN 20 MMHG
  10. HEPARIN [Concomitant]
     Active Substance: HEPARIN SODIUM
     Indication: CEREBRAL VENOUS SINUS THROMBOSIS
     Dosage: INFUSION AT 18 U/KG/H
     Route: 042
  11. FENTANYL. [Suspect]
     Active Substance: FENTANYL
     Indication: INTRACRANIAL PRESSURE INCREASED
     Dosage: INFUSION AT 0.5 MICROG/KG/H.
  12. SALINE                             /00075401/ [Suspect]
     Active Substance: SODIUM CHLORIDE
     Dosage: 120 MILLIEQUIVALENT ONE 120 MEQ BOLUS OF 23.4% HYPERTONIC SODIUM CHLORIDE
     Route: 065
  13. MANNITOL. [Concomitant]
     Active Substance: MANNITOL
     Indication: PRODUCT USED FOR UNKNOWN INDICATION
     Dosage: 100 GRAM ADMINISTERED OVER 90 MINUTES
     Route: 065
  14. MIDAZOLAM. [Suspect]
     Active Substance: MIDAZOLAM
     Indication: INTRACRANIAL PRESSURE INCREASED
     Dosage: TITRATED TO A MAX OF 10 MG/H  BOLUS
  15. ROCURONIUM [Suspect]
     Active Substance: ROCURONIUM BROMIDE
     Indication: INTRACRANIAL PRESSURE INCREASED
     Dosage: RECEIVED ONE 50MG BOLUS AND ONE 100MG BOLUS
     Route: 065
  16. PENTOBARBITAL. [Concomitant]
     Active Substance: PENTOBARBITAL
     Dosage: 5 MG/KG/H
  17. SALINE                             /00075401/ [Suspect]
     Active Substance: SODIUM CHLORIDE
     Indication: INTRACRANIAL PRESSURE INCREASED
     Dosage: INFUSION AT 75 ML/H

REACTIONS (2)
  - Drug ineffective for unapproved indication [Unknown]
  - Off label use [Unknown]
